FAERS Safety Report 10102615 (Version 1)
Quarter: 2014Q2

REPORT INFORMATION
  Report Type: Spontaneous
  Country: FR (occurrence: FR)
  Receive Date: 20140424
  Receipt Date: 20140424
  Transmission Date: 20141212
  Serious: Yes (Hospitalization)
  Sender: FDA-Public Use
  Company Number: FR-BAXTER-2014BAX020253

PATIENT
  Sex: 0

DRUGS (2)
  1. SOLUTION INJECTABLE DE CHLORURE DE SODIUM ? 0.9 POUR CENT BAXTER, SOLU [Suspect]
     Indication: DEVICE THERAPY
     Route: 010
  2. FRAXIPARIN [Suspect]
     Indication: ANTICOAGULANT THERAPY

REACTIONS (6)
  - Malaise [Recovered/Resolved]
  - Chest pain [Recovered/Resolved]
  - Feeling cold [Recovered/Resolved]
  - Vomiting [Recovered/Resolved]
  - Dysgeusia [Unknown]
  - Nausea [Unknown]
